FAERS Safety Report 8580292-8 (Version None)
Quarter: 2012Q2

REPORT INFORMATION
  Report Type: 
  Country: None (occurrence: None)
  Receive Date: 20120423
  Receipt Date: 20100412
  Transmission Date: 20120825
  Serious: Yes (Other)
  Sender: FDA-Public Use
  Company Number: PHHY2010US22574

PATIENT
  Sex: Female
  Weight: 59 kg

DRUGS (1)
  1. EXJADE [Suspect]
     Indication: MYELODYSPLASTIC SYNDROME
     Dosage: 1250 MG DAILY, ORAL
     Route: 048
     Dates: start: 20090804, end: 20100212

REACTIONS (1)
  - NEOPLASM MALIGNANT [None]
